FAERS Safety Report 25276359 (Version 1)
Quarter: 2025Q2

REPORT INFORMATION
  Report Type: Spontaneous
  Country: CN (occurrence: CN)
  Receive Date: 20250507
  Receipt Date: 20250507
  Transmission Date: 20250717
  Serious: Yes (Other)
  Sender: BOEHRINGER INGELHEIM
  Company Number: CN-BoehringerIngelheim-2025-BI-024951

PATIENT
  Age: 45 Year
  Sex: Male

DRUGS (1)
  1. SPIRIVA [Suspect]
     Active Substance: TIOTROPIUM BROMIDE MONOHYDRATE
     Indication: Chronic obstructive pulmonary disease

REACTIONS (6)
  - Septic shock [Unknown]
  - Abdominal distension [Unknown]
  - Abdominal pain [Unknown]
  - Diarrhoea [Recovering/Resolving]
  - Discomfort [Unknown]
  - Metabolic disorder [Unknown]

NARRATIVE: CASE EVENT DATE: 20240901
